FAERS Safety Report 5497757-8 (Version None)
Quarter: 2007Q4

REPORT INFORMATION
  Report Type: 
  Country: None (occurrence: None)
  Receive Date: 20071025
  Receipt Date: 20070221
  Transmission Date: 20080405
  Serious: No
  Sender: FDA-Public Use
  Company Number: A0640407A

PATIENT
  Age: 68 Year
  Sex: Male

DRUGS (12)
  1. ADVAIR DISKUS 100/50 [Suspect]
     Indication: COUGH
     Dosage: 1PUFF TWICE PER DAY
     Route: 055
     Dates: start: 20070212, end: 20070220
  2. VARIVAX [Suspect]
     Indication: PROPHYLAXIS
     Route: 065
     Dates: start: 20070201, end: 20070201
  3. LIPITOR [Concomitant]
  4. TOPROL-XL [Concomitant]
  5. ACTOS [Concomitant]
  6. NORVASC [Concomitant]
  7. DETROL [Concomitant]
  8. HYZAAR [Concomitant]
  9. NEXIUM [Concomitant]
  10. PLAVIX [Concomitant]
  11. FLOMAX [Concomitant]
  12. ALLEGRA [Concomitant]

REACTIONS (2)
  - PRURITUS [None]
  - RASH [None]
